FAERS Safety Report 17164309 (Version 4)
Quarter: 2020Q3

REPORT INFORMATION
  Report Type: Spontaneous
  Country: IN (occurrence: IN)
  Receive Date: 20191217
  Receipt Date: 20200805
  Transmission Date: 20201102
  Serious: Yes (Death, Hospitalization, Other)
  Sender: FDA-Public Use
  Company Number: IN-PFIZER INC-2019541834

PATIENT
  Age: 67 Year
  Sex: Male

DRUGS (5)
  1. VEBALONE [Concomitant]
     Indication: PREMEDICATION
     Dosage: 6 MG, UNK
     Route: 042
  2. VEBALONE [Concomitant]
     Dosage: 6 MG
     Route: 042
     Dates: start: 20200309, end: 20200309
  3. VEBALONE [Concomitant]
     Dosage: 6 MG, UNK
     Route: 042
     Dates: start: 20191111, end: 20191111
  4. CRIZALK [Suspect]
     Active Substance: CRIZOTINIB
     Indication: LUNG CANCER METASTATIC
     Dosage: 250 MG, 2X/DAY
     Route: 048
     Dates: start: 20190403, end: 20200730
  5. THYRONORM [Concomitant]
     Active Substance: LEVOTHYROXINE
     Indication: HYPOTHYROIDISM
     Dosage: 50 UG, 1X/DAY

REACTIONS (6)
  - Death [Fatal]
  - Metastatic renal cell carcinoma [Unknown]
  - Second primary malignancy [Unknown]
  - Product dose omission issue [Unknown]
  - Seizure [Unknown]
  - Pyrexia [Unknown]

NARRATIVE: CASE EVENT DATE: 2019
